FAERS Safety Report 20798972 (Version 4)
Quarter: 2022Q3

REPORT INFORMATION
  Report Type: Report from Study
  Country: MX (occurrence: MX)
  Receive Date: 20220507
  Receipt Date: 20220629
  Transmission Date: 20221026
  Serious: Yes (Other)
  Sender: FDA-Public Use
  Company Number: MX-NOVARTISPH-NVSC2022MX105632

PATIENT
  Sex: Female
  Weight: 81 kg

DRUGS (1)
  1. METFORMIN HYDROCHLORIDE\VILDAGLIPTIN [Suspect]
     Active Substance: METFORMIN HYDROCHLORIDE\VILDAGLIPTIN
     Indication: Diabetes mellitus
     Dosage: 1 DOSAGE FORM, BID
     Route: 048
     Dates: start: 2008, end: 20220428

REACTIONS (5)
  - Nephrolithiasis [Recovering/Resolving]
  - Anxiety [Recovering/Resolving]
  - Hiccups [Unknown]
  - Thyroid disorder [Recovering/Resolving]
  - Tremor [Unknown]

NARRATIVE: CASE EVENT DATE: 20120101
